FAERS Safety Report 7379594-2 (Version None)
Quarter: 2011Q1

REPORT INFORMATION
  Report Type: 
  Country: None (occurrence: None)
  Receive Date: 20110329
  Receipt Date: 20110315
  Transmission Date: 20110831
  Serious: Yes (Hospitalization, Other)
  Sender: FDA-Public Use
  Company Number: PT-AMGEN-PRTSP2010003276

PATIENT
  Sex: Female

DRUGS (9)
  1. CALCIUM CARBONATE W/COLECALCIFEROL [Concomitant]
  2. SYMBICORT [Concomitant]
     Indication: PULMONARY FIBROSIS
  3. PREDNISONE [Concomitant]
     Indication: RHEUMATOID ARTHRITIS
  4. FLUIMUCIL                          /00082801/ [Concomitant]
     Indication: PULMONARY FIBROSIS
  5. ENBREL [Suspect]
     Indication: RHEUMATOID ARTHRITIS
     Dosage: 50 MG, QWK
     Dates: start: 20010101, end: 20101001
  6. OVESTIN [Concomitant]
  7. OMEPRAZOLE [Concomitant]
  8. VITAMIN C                          /00008001/ [Concomitant]
  9. BUDESONIDE [Concomitant]

REACTIONS (3)
  - HYPERGAMMAGLOBULINAEMIA BENIGN MONOCLONAL [None]
  - CONDITION AGGRAVATED [None]
  - URINARY TRACT INFECTION [None]
